FAERS Safety Report 5043235-X (Version None)
Quarter: 2006Q2

REPORT INFORMATION
  Report Type: 
  Country: None (occurrence: None)
  Receive Date: 20060601
  Receipt Date: 20060330
  Transmission Date: 20061013
  Serious: No
  Sender: FDA-Public Use
  Company Number: 2006PV011198

PATIENT
  Age: 76 Year
  Sex: Female
  Weight: 99.3377 kg

DRUGS (2)
  1. BYETTA [Suspect]
     Indication: DIABETES MELLITUS NON-INSULIN-DEPENDENT
     Dosage: 5 MCG; BID; SC
     Route: 058
     Dates: start: 20060201
  2. NOVOLIN 70/30 [Concomitant]

REACTIONS (2)
  - FEELING COLD [None]
  - NAUSEA [None]
